FAERS Safety Report 7594162-5 (Version None)
Quarter: 2011Q3

REPORT INFORMATION
  Report Type: 
  Country: None (occurrence: None)
  Receive Date: 20110706
  Receipt Date: 20110701
  Transmission Date: 20111222
  Serious: Yes (Hospitalization, Other)
  Sender: FDA-Public Use
  Company Number: FR-PFIZER INC-2011026613

PATIENT
  Age: 32 Year
  Sex: Female
  Weight: 68 kg

DRUGS (4)
  1. NEURONTIN [Suspect]
     Indication: SOMNAMBULISM
     Dosage: 400 MG, 1X/DAY
     Route: 048
     Dates: start: 20100701, end: 20101224
  2. VALACYCLOVIR HYDROCHLORIDE [Concomitant]
     Indication: TOOTH DISORDER
     Dosage: UNK
  3. METRONIDAZOLE [Concomitant]
     Indication: TOOTH DISORDER
     Dosage: UNK
  4. NEURONTIN [Suspect]
     Dosage: UNK
     Dates: start: 20110203, end: 20110222

REACTIONS (1)
  - HENOCH-SCHONLEIN PURPURA [None]
